FAERS Safety Report 8113938-9 (Version None)
Quarter: 2012Q1

REPORT INFORMATION
  Report Type: 
  Country: None (occurrence: None)
  Receive Date: 20120203
  Receipt Date: 20120120
  Transmission Date: 20120608
  Serious: Yes (Death, Hospitalization, Disabling)
  Sender: FDA-Public Use
  Company Number: CA-INCYTE CORPORATION-2011IN000333

PATIENT
  Sex: Male
  Weight: 40.82 kg

DRUGS (6)
  1. HYDROMORPHONE HCL [Suspect]
     Indication: PRODUCT USED FOR UNKNOWN INDICATION
     Dosage: 2 MG, Q4-6H
     Dates: start: 20111125
  2. DALTEPARIN SODIUM [Suspect]
     Indication: THROMBOSIS PROPHYLAXIS
     Dosage: 5000 U, QD
     Route: 058
     Dates: start: 20111205, end: 20111206
  3. INC424 [Suspect]
     Indication: MYELOFIBROSIS
     Dosage: 15 MG, BID
     Route: 048
     Dates: start: 20111109, end: 20111125
  4. LOSARTAN POTASSIUM [Concomitant]
     Dosage: UNK
  5. ASPIRIN [Concomitant]
     Dosage: UNK
  6. GLYBURIDE [Concomitant]
     Dosage: UNK

REACTIONS (7)
  - EXTRADURAL HAEMATOMA [None]
  - DYSPNOEA [None]
  - CONFUSIONAL STATE [None]
  - MUSCULOSKELETAL PAIN [None]
  - ARTHRALGIA [None]
  - ASTHENIA [None]
  - PYREXIA [None]
